FAERS Safety Report 8552793-X (Version None)
Quarter: 2012Q3

REPORT INFORMATION
  Report Type: 
  Country: None (occurrence: None)
  Receive Date: 20120731
  Receipt Date: 20120727
  Transmission Date: 20120928
  Serious: Yes (Disabling)
  Sender: FDA-Public Use
  Company Number: US-PFIZER INC-2012182960

PATIENT
  Sex: Female
  Weight: 90.703 kg

DRUGS (2)
  1. LYRICA [Suspect]
     Indication: ARTHRALGIA
     Dosage: 100 MG, 3X/DAY
     Dates: start: 20110101, end: 20120101
  2. LYRICA [Suspect]
     Indication: CHONDROPATHY

REACTIONS (2)
  - GAIT DISTURBANCE [None]
  - PAIN [None]
